FAERS Safety Report 10203330 (Version 2)
Quarter: 2014Q2

REPORT INFORMATION
  Report Type: Report from Study
  Country: BR (occurrence: BR)
  Receive Date: 20140529
  Receipt Date: 20140620
  Transmission Date: 20141212
  Serious: Yes (Hospitalization)
  Sender: FDA-Public Use
  Company Number: PHHY2014BR062591

PATIENT
  Age: 20 Year
  Sex: Female
  Weight: 54 kg

DRUGS (2)
  1. EXJADE [Suspect]
     Indication: SERUM FERRITIN DECREASED
     Dosage: 2 DF, QD
     Route: 048
  2. HYDREA [Concomitant]
     Dosage: 3 TABLETS (1 TABLET IN MORNING AND 2 TABLET AT NIGHT)
     Route: 048

REACTIONS (3)
  - Pain [Recovering/Resolving]
  - Pneumonia [Recovered/Resolved]
  - Sleep disorder [Recovering/Resolving]
